FAERS Safety Report 21702008 (Version 1)
Quarter: 2022Q4

REPORT INFORMATION
  Report Type: Spontaneous
  Country: CL (occurrence: CL)
  Receive Date: 20221208
  Receipt Date: 20221208
  Transmission Date: 20230113
  Serious: Yes (Other)
  Sender: FDA-Public Use
  Company Number: CL-SA-SAC20221108000303

PATIENT

DRUGS (1)
  1. ALDURAZYME [Suspect]
     Active Substance: LARONIDASE
     Indication: Product used for unknown indication
     Dosage: IT WAS 8 VIALS, NOW ITS 10 VIALS
     Route: 065
     Dates: start: 2009

REACTIONS (3)
  - Corneal transplant [Unknown]
  - Mucopolysaccharidosis I [Unknown]
  - Corneal disorder [Recovered/Resolved]

NARRATIVE: CASE EVENT DATE: 20090101
